FAERS Safety Report 4660599-7 (Version None)
Quarter: 2005Q2

REPORT INFORMATION
  Report Type: 
  Country: None (occurrence: None)
  Receive Date: 20050512
  Receipt Date: 20050509
  Transmission Date: 20051028
  Serious: Yes (Death)
  Sender: FDA-Public Use
  Company Number: 2005UW07104

PATIENT

DRUGS (4)
  1. CRESTOR [Suspect]
  2. NASONEX [Suspect]
     Route: 045
  3. AERIUS [Suspect]
  4. EZETROL [Suspect]
     Route: 048
     Dates: start: 20040401

REACTIONS (1)
  - MYALGIA [None]
